FAERS Safety Report 22190032 (Version 2)
Quarter: 2023Q2

REPORT INFORMATION
  Report Type: Spontaneous
  Country: US (occurrence: US)
  Receive Date: 20230410
  Receipt Date: 20230427
  Transmission Date: 20230722
  Serious: No
  Sender: FDA-Public Use
  Company Number: US-BIOGEN-2023BI01198059

PATIENT
  Sex: Male

DRUGS (1)
  1. VUMERITY [Suspect]
     Active Substance: DIROXIMEL FUMARATE
     Indication: Multiple sclerosis
     Route: 050
     Dates: start: 20230331

REACTIONS (6)
  - Loss of control of legs [Unknown]
  - Skin burning sensation [Unknown]
  - Memory impairment [Unknown]
  - Dysphemia [Unknown]
  - Tremor [Unknown]
  - Fatigue [Unknown]
